FAERS Safety Report 4264986-0 (Version None)
Quarter: 2004Q1

REPORT INFORMATION
  Report Type: 
  Country: None (occurrence: None)
  Receive Date: 20040106
  Receipt Date: 20031027
  Transmission Date: 20041129
  Serious: Yes (Disabling)
  Sender: FDA-Public Use
  Company Number: WAES 0310FRA00092

PATIENT
  Age: 75 Year
  Sex: Female
  Weight: 43 kg

DRUGS (2)
  1. COSOPT [Suspect]
     Indication: INTRAOCULAR PRESSURE INCREASED
     Route: 047
     Dates: start: 20030226, end: 20030416
  2. PREDNISONE [Concomitant]
     Route: 048

REACTIONS (5)
  - CONFUSIONAL STATE [None]
  - DIZZINESS [None]
  - FATIGUE [None]
  - MEMORY IMPAIRMENT [None]
  - NIGHTMARE [None]
